FAERS Safety Report 6008175-8 (Version None)
Quarter: 2008Q4

REPORT INFORMATION
  Report Type: 
  Country: None (occurrence: None)
  Receive Date: 20081217
  Receipt Date: 20080729
  Transmission Date: 20090506
  Serious: No
  Sender: FDA-Public Use
  Company Number: US-ASTRAZENECA-2008UW14913

PATIENT
  Age: 72 Year
  Sex: Female
  Weight: 88 kg

DRUGS (4)
  1. CRESTOR [Suspect]
     Indication: BLOOD CHOLESTEROL INCREASED
     Route: 048
     Dates: start: 20060101
  2. CRESTOR [Suspect]
     Dosage: MONDAY, WEDNESDAY AND FRIDAY AT NOON (WITHOUT OTHER MEDICATIONS)
     Route: 048
     Dates: start: 20080101
  3. LASIX [Concomitant]
  4. IMDUR [Concomitant]

REACTIONS (3)
  - ARTHRALGIA [None]
  - GAIT DISTURBANCE [None]
  - MYALGIA [None]
